APPROVED DRUG PRODUCT: CEFADROXIL
Active Ingredient: CEFADROXIL/CEFADROXIL HEMIHYDRATE
Strength: EQ 1GM BASE
Dosage Form/Route: TABLET;ORAL
Application: A062774 | Product #001
Applicant: TEVA PHARMACEUTICALS USA
Approved: Apr 8, 1987 | RLD: No | RS: Yes | Type: RX